FAERS Safety Report 10470195 (Version 1)
Quarter: 2014Q3

REPORT INFORMATION
  Report Type: Spontaneous
  Country: US (occurrence: US)
  Receive Date: 20140923
  Receipt Date: 20140923
  Transmission Date: 20150326
  Serious: No
  Sender: FDA-Public Use
  Company Number: US-PFIZER INC-2014258976

PATIENT
  Age: 5 Year
  Sex: Female
  Weight: 28.12 kg

DRUGS (3)
  1. CHILDRENS ADVIL [Suspect]
     Active Substance: IBUPROFEN
     Indication: PYREXIA
     Dosage: TWO CHEWABLE TABLETS, ONE IN THE AFTERNOON AND ONE IN THE EVENING
     Dates: start: 20140915, end: 20140915
  2. CHILDRENS ADVIL [Suspect]
     Active Substance: IBUPROFEN
     Dosage: ONE CHEWABLE TABLET
     Dates: start: 20140916, end: 20140916
  3. AMOXICILLIN. [Concomitant]
     Active Substance: AMOXICILLIN
     Indication: SINUSITIS
     Dosage: TWO TEASPOONS, TWICE A DAY
     Dates: start: 20140915

REACTIONS (3)
  - Oral pruritus [Recovered/Resolved]
  - Lip pruritus [Recovered/Resolved]
  - Tongue pruritus [Recovered/Resolved]

NARRATIVE: CASE EVENT DATE: 20140916
